FAERS Safety Report 13411545 (Version 1)
Quarter: 2017Q2

REPORT INFORMATION
  Report Type: Spontaneous
  Country: US (occurrence: US)
  Receive Date: 20170406
  Receipt Date: 20170406
  Transmission Date: 20170830
  Serious: Yes (Death, Other)
  Sender: FDA-Public Use
  Company Number: US-NAPPMUNDI-USA-2017-0137571

PATIENT
  Age: 56 Year
  Sex: Male

DRUGS (1)
  1. OXYCONTIN [Suspect]
     Active Substance: OXYCODONE HYDROCHLORIDE
     Indication: DISCOMFORT
     Dosage: UNK
     Route: 048
     Dates: end: 201703

REACTIONS (6)
  - Road traffic accident [Unknown]
  - Impaired driving ability [Unknown]
  - Unevaluable event [Unknown]
  - Gun shot wound [Fatal]
  - Aggression [Unknown]
  - Drug dose titration not performed [Unknown]

NARRATIVE: CASE EVENT DATE: 2012
